FAERS Safety Report 5312310-4 (Version None)
Quarter: 2007Q2

REPORT INFORMATION
  Report Type: 
  Country: None (occurrence: None)
  Receive Date: 20070430
  Receipt Date: 20060918
  Transmission Date: 20071010
  Serious: No
  Sender: FDA-Public Use
  Company Number: 2006UW18203

PATIENT
  Age: 68 Year
  Sex: Female
  Weight: 63.5 kg

DRUGS (8)
  1. NEXIUM [Suspect]
     Indication: THROAT IRRITATION
     Route: 048
  2. NEXIUM [Suspect]
     Indication: DYSPHONIA
     Route: 048
  3. NEXIUM [Suspect]
     Indication: GASTROOESOPHAGEAL REFLUX DISEASE
     Route: 048
  4. NADOLOL [Concomitant]
  5. PREMARIN [Concomitant]
  6. TRICOR [Concomitant]
  7. SYNTHROID [Concomitant]
  8. ASPIRIN [Concomitant]

REACTIONS (1)
  - PALPITATIONS [None]
